FAERS Safety Report 5805144-5 (Version None)
Quarter: 2008Q3

REPORT INFORMATION
  Report Type: 
  Country: None (occurrence: None)
  Receive Date: 20080709
  Receipt Date: 20080701
  Transmission Date: 20090109
  Serious: Yes (Hospitalization)
  Sender: FDA-Public Use
  Company Number: JP-ABBOTT-08P-087-0460389-00

PATIENT
  Age: 16 Year

DRUGS (2)
  1. CLARITH TABLETS [Suspect]
     Indication: DRUG USE FOR UNKNOWN INDICATION
     Route: 048
     Dates: start: 20071109, end: 20071109
  2. UNKNOWN MEDICATION [Concomitant]
     Indication: HEADACHE
     Route: 065

REACTIONS (11)
  - ACUTE RESPIRATORY DISTRESS SYNDROME [None]
  - COUGH [None]
  - CYANOSIS [None]
  - DIARRHOEA [None]
  - ENTERITIS INFECTIOUS [None]
  - EOSINOPHILIC PNEUMONIA ACUTE [None]
  - HYPOXIA [None]
  - LYMPHOCYTE STIMULATION TEST POSITIVE [None]
  - NAUSEA [None]
  - PYREXIA [None]
  - VOMITING [None]
